FAERS Safety Report 6305785-5 (Version None)
Quarter: 2009Q3

REPORT INFORMATION
  Report Type: 
  Country: None (occurrence: None)
  Receive Date: 20090812
  Receipt Date: 20070918
  Transmission Date: 20100115
  Serious: Yes (Other)
  Sender: FDA-Public Use
  Company Number: US-ASTRAZENECA-2006UW26154

PATIENT
  Age: 16881 Day
  Sex: Female
  Weight: 97.5 kg

DRUGS (19)
  1. SEROQUEL [Suspect]
     Indication: DEPRESSION
     Dosage: NOT REPORTED
     Route: 048
     Dates: start: 19970101, end: 20020101
  2. SEROQUEL [Suspect]
     Indication: SLEEP DISORDER
     Dosage: NOT REPORTED
     Route: 048
     Dates: start: 19970101, end: 20020101
  3. SEROQUEL [Suspect]
     Dosage: 12.5 MG- 150 MG
     Route: 048
     Dates: start: 19990702
  4. SEROQUEL [Suspect]
     Dosage: 12.5 MG- 150 MG
     Route: 048
     Dates: start: 19990702
  5. ABILIFY [Concomitant]
     Dates: start: 20060101
  6. RISPERDAL [Concomitant]
     Dosage: STRENGTH- 1 MG  DOSE- 0.5MG-2.5 MG DAILY
  7. LEXAPRO [Concomitant]
     Dosage: STRENGTH- 10MG, 12.5MG, 15MG  DOSE- 10MG-15MG DAILY
  8. WELLBUTRIN XL [Concomitant]
     Dosage: STRENGTH- 75MG, 150MG  DOSE- 150MG DAILY
     Route: 048
  9. AMBIEN [Concomitant]
     Dosage: STRENGTH- 5 MG, 10MG  DOSE- 10MG-20MG DAILY
     Route: 048
  10. HYDROXYZINE [Concomitant]
     Dosage: STRENGTH- 25MG  DOSE- 25MG-50MG FOUR TO SIX HOURS AS NEEDED
  11. ACETAMINOPHEN AND HYDROCODONE BITARTRATE [Concomitant]
     Indication: PAIN
     Dosage: STRENGTH- 500MG  DOSE- 500MG-1000 MG FOUR TO SIX HOURS AS NEEDED
  12. SINGULAIR [Concomitant]
     Route: 048
  13. TYLENOL (CAPLET) [Concomitant]
     Indication: ARTHRITIS
     Dosage: STRENGTH- 500MG, 650MG  DOSE-  1300MG-7800MG DAILY AS NEEDED
  14. QUININE [Concomitant]
     Indication: MUSCLE SPASMS
     Dosage: STRENGTH- 260MG, 325MG DOSE- 260MG-325 MG EVERY EIGHT HOURS AS NEEDED
     Route: 048
  15. ZOCOR [Concomitant]
     Indication: HYPERLIPIDAEMIA
  16. ACTOS [Concomitant]
     Route: 048
  17. LIPITOR [Concomitant]
     Dosage: STRENGTH- 40MG, 80MG.  DOSE- 40MG-80MG DAILY
     Route: 048
  18. PROMETHAZINE [Concomitant]
     Indication: NAUSEA
     Route: 048
  19. ALPRAZOLAM [Concomitant]
     Indication: ANXIETY
     Dosage: DOSE- 0.25 MG-1MG DAILY

REACTIONS (4)
  - DIABETES MELLITUS [None]
  - DIABETIC GASTROPARESIS [None]
  - DIABETIC NEUROPATHY [None]
  - NEUROPATHY PERIPHERAL [None]
